FAERS Safety Report 25811768 (Version 1)
Quarter: 2025Q3

REPORT INFORMATION
  Report Type: Spontaneous
  Country: EG (occurrence: EG)
  Receive Date: 20250917
  Receipt Date: 20250917
  Transmission Date: 20251020
  Serious: Yes (Other)
  Sender: HIKMA
  Company Number: EG-HIKMA PHARMACEUTICALS-EG-H14001-25-10381

PATIENT
  Age: 74 Year
  Sex: Female
  Weight: 70 kg

DRUGS (6)
  1. IRINOTECAN [Suspect]
     Active Substance: IRINOTECAN
     Indication: Pancreatic carcinoma
     Dosage: 200 MILLIGRAM, OVER 90 MINUTES
     Route: 041
     Dates: start: 20250717
  2. LEUCOVORIN CALCIUM [Suspect]
     Active Substance: LEUCOVORIN CALCIUM
     Indication: Pancreatic carcinoma
     Dosage: 680 MILLIGRAM, OVER 2 HOURS FOR 2 CONSECUTIVE DAYS
     Route: 041
     Dates: start: 20250717
  3. OXALIPLATIN [Suspect]
     Active Substance: OXALIPLATIN
     Indication: Pancreatic carcinoma
     Dosage: 120 MILLIGRAM, OVER TWO HOURS
     Route: 041
     Dates: start: 20250717
  4. FLUOROURACIL [Suspect]
     Active Substance: FLUOROURACIL
     Indication: Pancreatic carcinoma
     Dosage: 3500 MILLIGRAM, OVER 46 HOURS, VIA INTRAVENOUS SYRINGE AND INFUSION
     Route: 041
     Dates: start: 20250717
  5. DEXAMETHASONE [Concomitant]
     Active Substance: DEXAMETHASONE
     Indication: Chemotherapy side effect prophylaxis
     Route: 042
  6. EM EX [Concomitant]
     Indication: Chemotherapy side effect prophylaxis
     Route: 042

REACTIONS (1)
  - Normochromic normocytic anaemia [Recovering/Resolving]

NARRATIVE: CASE EVENT DATE: 20250731
